FAERS Safety Report 19279552 (Version 1)
Quarter: 2021Q2

REPORT INFORMATION
  Report Type: Spontaneous
  Country: US (occurrence: US)
  Receive Date: 20210520
  Receipt Date: 20210520
  Transmission Date: 20210717
  Serious: No
  Sender: FDA-Public Use
  Company Number: US-SA-2021SA157642

PATIENT
  Age: 52 Year
  Sex: Male

DRUGS (1)
  1. APIDRA [Suspect]
     Active Substance: INSULIN GLULISINE
     Indication: TYPE 1 DIABETES MELLITUS
     Dosage: 50?65 UNITS , UNK
     Route: 065

REACTIONS (3)
  - Visual impairment [Recovering/Resolving]
  - Device breakage [Unknown]
  - Device leakage [Unknown]
